FAERS Safety Report 6323927-2 (Version None)
Quarter: 2009Q3

REPORT INFORMATION
  Report Type: 
  Country: None (occurrence: None)
  Receive Date: 20090824
  Receipt Date: 20090817
  Transmission Date: 20100115
  Serious: Yes (Congenital Anomaly)
  Sender: FDA-Public Use
  Company Number: A0746219A

PATIENT
  Sex: Male
  Weight: 3.7 kg

DRUGS (6)
  1. PAXIL [Suspect]
     Indication: DEPRESSION
     Dosage: 30MG TWICE PER DAY
     Dates: start: 20000101, end: 20080101
  2. LOVENOX [Concomitant]
  3. PREDNISONE TAB [Concomitant]
  4. PLAQUENIL [Concomitant]
  5. VITAMIN TAB [Concomitant]
  6. ASPIRIN [Concomitant]

REACTIONS (9)
  - AORTIC STENOSIS [None]
  - DRUG EXPOSURE DURING PREGNANCY [None]
  - ELECTROCARDIOGRAM PR SHORTENED [None]
  - MATERNAL DRUGS AFFECTING FOETUS [None]
  - MULTIPLE CONGENITAL ABNORMALITIES [None]
  - MYOCARDIAL INFARCTION [None]
  - PULMONARY VALVE STENOSIS [None]
  - RIGHT VENTRICULAR HYPERTROPHY [None]
  - SINUS TACHYCARDIA [None]
